FAERS Safety Report 15013779 (Version 1)
Quarter: 2018Q2

REPORT INFORMATION
  Report Type: Report from Study
  Country: None (occurrence: US)
  Receive Date: 20180614
  Receipt Date: 20180614
  Transmission Date: 20180711
  Serious: Yes (Hospitalization)
  Sender: FDA-Public Use
  Company Number: US-ABBVIE-18K-163-2382551-00

PATIENT
  Age: 34 Year
  Sex: Male

DRUGS (1)
  1. MAVYRET [Suspect]
     Active Substance: GLECAPREVIR\PIBRENTASVIR
     Indication: HEPATITIS C
     Dosage: MAVVRET 100/40 MG TABS
     Route: 048
     Dates: end: 201805

REACTIONS (5)
  - Nausea [Not Recovered/Not Resolved]
  - Acute kidney injury [Unknown]
  - Abdominal discomfort [Not Recovered/Not Resolved]
  - Fluid intake reduced [Unknown]
  - Fatigue [Not Recovered/Not Resolved]

NARRATIVE: CASE EVENT DATE: 201805
